FAERS Safety Report 20107704 (Version 1)
Quarter: 2021Q4

REPORT INFORMATION
  Report Type: Spontaneous
  Country: US (occurrence: US)
  Receive Date: 20211124
  Receipt Date: 20211124
  Transmission Date: 20220303
  Serious: No
  Sender: FDA-Public Use
  Company Number: US-PERRIGO-20US018249

PATIENT
  Age: 88 Year
  Sex: Male
  Weight: 70.295 kg

DRUGS (2)
  1. POLYETHYLENE GLYCOL 3350 [Suspect]
     Active Substance: POLYETHYLENE GLYCOL 3350
     Indication: Constipation
     Dosage: 17 G, SINGLE
     Route: 048
     Dates: start: 20201215, end: 20201215
  2. GLYCERIN [Suspect]
     Active Substance: GLYCERIN
     Indication: Constipation
     Dosage: 1 SUPPOSITORY, SINGLE
     Route: 054
     Dates: start: 20201216, end: 20201216

REACTIONS (3)
  - Diarrhoea [Not Recovered/Not Resolved]
  - Anal incontinence [Not Recovered/Not Resolved]
  - Drug ineffective [Unknown]

NARRATIVE: CASE EVENT DATE: 20201215
